FAERS Safety Report 9063563 (Version 1)
Quarter: 2013Q1

REPORT INFORMATION
  Report Type: Spontaneous
  Country: US (occurrence: US)
  Receive Date: 20130213
  Receipt Date: 20130213
  Transmission Date: 20140127
  Serious: No
  Sender: FDA-Public Use
  Company Number: US-BAYER-2013-016352

PATIENT
  Age: 75 Year
  Sex: Male
  Weight: 90 kg

DRUGS (15)
  1. ALEVE CAPLET/TABLET,MIDOL EXTENDED RELIEF CAPLET [Suspect]
     Indication: ARTHRITIS
     Dosage: 2 DF, BID
  2. ENBREL [Concomitant]
  3. BENADRYL [Concomitant]
  4. ASPIRIN [Concomitant]
  5. FISH OIL [Concomitant]
  6. FLAXSEED OIL [Concomitant]
  7. PANTOPRAZOLE [Concomitant]
  8. TAMSULOSIN [Concomitant]
  9. LEVOTHYROXINE [Concomitant]
  10. VITAMIN D [Concomitant]
  11. VITAMIN E [Concomitant]
  12. VITAMIN E [Concomitant]
  13. SUPER B COMPLEX [Concomitant]
  14. GLUCOSAMINE SULFATE W/CHONDROITIN [Concomitant]
  15. SAW PALMETTO [Concomitant]

REACTIONS (1)
  - Incorrect drug administration duration [None]
